FAERS Safety Report 8852981 (Version 5)
Quarter: 2013Q4

REPORT INFORMATION
  Report Type: Report from Study
  Country: BR (occurrence: BR)
  Receive Date: 20121022
  Receipt Date: 20131211
  Transmission Date: 20140711
  Serious: Yes (Death, Other)
  Sender: FDA-Public Use
  Company Number: BR-ROCHE-764870

PATIENT
  Age: 72 Year
  Sex: Female
  Weight: 75 kg

DRUGS (13)
  1. MABTHERA [Suspect]
     Indication: RHEUMATOID ARTHRITIS
     Dosage: DOSE, FREQUENCY: UNSPECIFIED.
     Route: 042
     Dates: start: 20100101, end: 20100801
  2. MABTHERA [Suspect]
     Route: 042
     Dates: start: 20120101, end: 20120918
  3. METICORTEN [Concomitant]
     Route: 065
  4. ARAVA [Concomitant]
     Route: 065
  5. ROQUINOL [Concomitant]
     Dosage: REPORTED AS REUQUINOL
     Route: 065
  6. SERTRALINE [Concomitant]
     Route: 065
  7. LEVOID [Concomitant]
     Dosage: 75 OR 50 MCG
     Route: 065
  8. TORLOS [Concomitant]
     Dosage: 50/2.5 MG
     Route: 065
  9. PLASIL [Concomitant]
     Dosage: PRE-MEDICATION
     Route: 065
  10. AMIODARONE [Concomitant]
     Route: 065
  11. MONOCORDIL [Concomitant]
     Route: 065
  12. SALICYLIC ACID [Concomitant]
  13. LOSARTAN [Concomitant]
     Indication: HYPERTENSION

REACTIONS (18)
  - Multi-organ failure [Fatal]
  - Gait disturbance [Fatal]
  - Pain in extremity [Fatal]
  - Eye disorder [Fatal]
  - Hypertension [Fatal]
  - Eye pain [Fatal]
  - Arthropathy [Fatal]
  - Lung disorder [Fatal]
  - Cardiac disorder [Fatal]
  - Femur fracture [Recovered/Resolved]
  - Lower limb fracture [Recovered/Resolved]
  - Ligament sprain [Recovering/Resolving]
  - Procedural pain [Recovering/Resolving]
  - Weight decreased [Not Recovered/Not Resolved]
  - Dyspnoea [Not Recovered/Not Resolved]
  - Medical device complication [Recovered/Resolved]
  - Malaise [Unknown]
  - Onychomadesis [Not Recovered/Not Resolved]
